FAERS Safety Report 6817011-9 (Version None)
Quarter: 2010Q3

REPORT INFORMATION
  Report Type: 
  Country: None (occurrence: None)
  Receive Date: 20100706
  Receipt Date: 20100625
  Transmission Date: 20110219
  Serious: Yes (Hospitalization)
  Sender: FDA-Public Use
  Company Number: ES-JNJFOC-20100505044

PATIENT
  Age: 49 Year
  Sex: Female
  Weight: 95 kg

DRUGS (13)
  1. REMICADE [Suspect]
     Indication: RHEUMATOID ARTHRITIS
     Route: 042
  2. REMICADE [Suspect]
     Dosage: DOSE ALSO REPORTED AS 300-350MG
     Route: 042
  3. REMICADE [Suspect]
     Route: 042
  4. METHOTREXATE [Concomitant]
  5. GLIMEPIRIDE [Concomitant]
     Route: 048
  6. ATACAND HCT [Concomitant]
     Route: 048
  7. CRESTOR [Concomitant]
     Route: 048
  8. ADIRO [Concomitant]
  9. ARTRINOVO [Concomitant]
     Dosage: 2 TABLETS PER DAY
     Route: 048
  10. VOLTAREN [Concomitant]
     Route: 048
  11. EUCREAS [Concomitant]
     Route: 048
  12. OMEPRAZOLE [Concomitant]
  13. SEPTRIN [Concomitant]

REACTIONS (14)
  - ACUTE MYELOID LEUKAEMIA [None]
  - ASTHENIA [None]
  - BLOOD CULTURE POSITIVE [None]
  - CANDIDURIA [None]
  - DENTAL CARIES [None]
  - DRUG INEFFECTIVE [None]
  - ENTEROCOCCUS TEST POSITIVE [None]
  - ESCHERICHIA BACTERAEMIA [None]
  - HERPES ZOSTER DISSEMINATED [None]
  - LUNG ADENOCARCINOMA STAGE IV [None]
  - MUSCULOSKELETAL PAIN [None]
  - ORAL INFECTION [None]
  - PNEUMONIA PNEUMOCOCCAL [None]
  - SEPTIC SHOCK [None]
